FAERS Safety Report 7927286-0 (Version None)
Quarter: 2011Q4

REPORT INFORMATION
  Report Type: 
  Country: None (occurrence: None)
  Receive Date: 20111118
  Receipt Date: 20111103
  Transmission Date: 20120403
  Serious: Yes (Other)
  Sender: FDA-Public Use
  Company Number: PHEH2009US15412

PATIENT
  Sex: Female

DRUGS (6)
  1. EXJADE [Suspect]
     Indication: IRON OVERLOAD
     Dosage: 1000 MG, DAILY
     Route: 048
     Dates: start: 20070612
  2. DESFERAL [Suspect]
     Indication: SERUM FERRITIN INCREASED
     Dosage: UNK UKN, UNK
     Route: 065
     Dates: start: 20071101
  3. DESFERAL [Suspect]
     Route: 065
  4. EXJADE [Suspect]
     Dosage: UNK UKN, UNK
     Route: 048
     Dates: start: 20080701
  5. EXJADE [Suspect]
     Dosage: 1000 MG, DAILY
     Route: 048
     Dates: end: 20111018
  6. EXJADE [Suspect]
     Dosage: 750 MG, UNK
     Dates: end: 20091001

REACTIONS (5)
  - INFLUENZA [None]
  - PAIN [None]
  - SERUM FERRITIN INCREASED [None]
  - DIARRHOEA [None]
  - PYREXIA [None]
